FAERS Safety Report 5607535-4 (Version None)
Quarter: 2008Q1

REPORT INFORMATION
  Report Type: 
  Country: None (occurrence: None)
  Receive Date: 20080130
  Receipt Date: 20080122
  Transmission Date: 20080703
  Serious: Yes (Hospitalization, Other)
  Sender: FDA-Public Use
  Company Number: PHEH2006US12237

PATIENT
  Age: 85 Year
  Sex: Female
  Weight: 102.49 kg

DRUGS (2)
  1. AREDIA [Suspect]
     Indication: BREAST CANCER
     Dosage: 60MG UNK
  2. ZOMETA [Suspect]
     Indication: METASTASES TO BONE
     Dosage: 2MG IN 100CC NS

REACTIONS (35)
  - ABSCESS [None]
  - ALVEOLOPLASTY [None]
  - ANXIETY [None]
  - ARTHRALGIA [None]
  - ASTHENIA [None]
  - ATRIAL FIBRILLATION [None]
  - BONE DEBRIDEMENT [None]
  - BONE DISORDER [None]
  - BONE MARROW OEDEMA [None]
  - COUGH [None]
  - DECREASED INTEREST [None]
  - DEFORMITY [None]
  - EMOTIONAL DISTRESS [None]
  - HYPOTONIA [None]
  - IMPAIRED HEALING [None]
  - INFECTION [None]
  - INFLAMMATION [None]
  - INJURY [None]
  - LIFE EXPECTANCY SHORTENED [None]
  - OEDEMA PERIPHERAL [None]
  - ORAL INTAKE REDUCED [None]
  - OSTEOMYELITIS [None]
  - OSTEONECROSIS [None]
  - PAIN [None]
  - PHYSICAL DISABILITY [None]
  - PRIMARY SEQUESTRUM [None]
  - PSOAS SIGN [None]
  - PURULENT DISCHARGE [None]
  - RENAL FAILURE [None]
  - TACHYCARDIA [None]
  - TOOTH EXTRACTION [None]
  - TRANSIENT ISCHAEMIC ATTACK [None]
  - UNRESPONSIVE TO STIMULI [None]
  - URINARY TRACT INFECTION [None]
  - VOMITING [None]
